FAERS Safety Report 6309396-7 (Version None)
Quarter: 2009Q3

REPORT INFORMATION
  Report Type: 
  Country: None (occurrence: None)
  Receive Date: 20090814
  Receipt Date: 20090805
  Transmission Date: 20100115
  Serious: Yes (Hospitalization)
  Sender: FDA-Public Use
  Company Number: ES-AVENTIS-200914751EU

PATIENT
  Age: 80 Year
  Sex: Male

DRUGS (6)
  1. SEGURIL                            /00032601/ [Suspect]
     Route: 048
     Dates: start: 20061201, end: 20070521
  2. OMEPRAZOL [Concomitant]
     Route: 048
     Dates: start: 20061201
  3. ALDACTONE [Concomitant]
     Route: 048
     Dates: start: 20061201
  4. COROPRES [Concomitant]
     Route: 048
     Dates: start: 20061201
  5. FLUMIL                             /00082801/ [Concomitant]
     Indication: CHRONIC OBSTRUCTIVE PULMONARY DISEASE
     Route: 048
     Dates: start: 20061201
  6. TROMALYT [Concomitant]
     Route: 048
     Dates: start: 20000216

REACTIONS (3)
  - DIZZINESS [None]
  - HYPONATRAEMIA [None]
  - LOSS OF CONSCIOUSNESS [None]
